FAERS Safety Report 9730161 (Version 6)
Quarter: 2015Q3

REPORT INFORMATION
  Report Type: Spontaneous
  Country: US (occurrence: US)
  Receive Date: 20131204
  Receipt Date: 20150817
  Transmission Date: 20151125
  Serious: Yes (Disabling, Other)
  Sender: FDA-Public Use
  Company Number: US-009507513-1312USA001811

PATIENT
  Sex: Female
  Weight: 74.83 kg

DRUGS (1)
  1. FOSAMAX [Suspect]
     Active Substance: ALENDRONATE SODIUM
     Indication: OSTEOPOROSIS
     Dosage: 70 MG, QW
     Route: 048
     Dates: start: 20041010, end: 20060822

REACTIONS (29)
  - Spinal osteoarthritis [Unknown]
  - Bone scan abnormal [Unknown]
  - Nausea [Unknown]
  - Spondylitis [Unknown]
  - Intramedullary rod insertion [Unknown]
  - Intervertebral disc degeneration [Unknown]
  - Osteopenia [Unknown]
  - Hepatitis [Unknown]
  - Osteoarthritis [Unknown]
  - Fatigue [Unknown]
  - Bone lesion [Unknown]
  - Hip fracture [Not Recovered/Not Resolved]
  - Atypical femur fracture [Unknown]
  - Atypical femur fracture [Recovering/Resolving]
  - Blood pressure abnormal [Unknown]
  - Anaemia [Unknown]
  - Low turnover osteopathy [Not Recovered/Not Resolved]
  - Tooth extraction [Unknown]
  - Back pain [Unknown]
  - Back pain [Unknown]
  - Blood cholesterol increased [Unknown]
  - Bursitis [Unknown]
  - Tendonitis [Unknown]
  - Osteoporosis [Not Recovered/Not Resolved]
  - Anxiety [Unknown]
  - Glaucoma [Unknown]
  - Vertigo [Unknown]
  - Pain in extremity [Unknown]
  - Pain in extremity [Unknown]

NARRATIVE: CASE EVENT DATE: 2006
